FAERS Safety Report 6183189-6 (Version None)
Quarter: 2009Q2

REPORT INFORMATION
  Report Type: 
  Country: None (occurrence: None)
  Receive Date: 20090507
  Receipt Date: 20090430
  Transmission Date: 20091009
  Serious: Yes (Other)
  Sender: FDA-Public Use
  Company Number: US-B.I. PHARMACEUTICALS,INC./RIDGEFIELD-2009-BP-02925BP

PATIENT
  Age: 71 Year
  Sex: Male

DRUGS (13)
  1. FLOMAX [Suspect]
     Indication: BENIGN PROSTATIC HYPERPLASIA
     Dosage: .4MG
     Route: 048
     Dates: start: 20050101
  2. FLOMAX [Suspect]
     Indication: DYSURIA
  3. COUMADIN [Concomitant]
  4. INSULIN [Concomitant]
     Indication: DIABETES MELLITUS
  5. HIGH CHOLESTERAL MEDS [Concomitant]
     Indication: BLOOD CHOLESTEROL INCREASED
  6. ISOSORDE [Concomitant]
     Dosage: 120MG
  7. ATENOLOL [Concomitant]
     Dosage: 50MG
  8. AMLODIPINE [Concomitant]
     Dosage: 5MCG
  9. BAYER [Concomitant]
     Dosage: 81MG
  10. WARFARIN SODIUM [Concomitant]
  11. SIMVASTATIN [Concomitant]
     Dosage: 40MG
  12. TORSEMIDE [Concomitant]
     Dosage: 20MG
  13. LASTOS [Concomitant]

REACTIONS (3)
  - BONE NEOPLASM MALIGNANT [None]
  - LUNG NEOPLASM MALIGNANT [None]
  - PROSTATE CANCER [None]
